FAERS Safety Report 19642809 (Version 1)
Quarter: 2021Q3

REPORT INFORMATION
  Report Type: Spontaneous
  Country: FR (occurrence: FR)
  Receive Date: 20210730
  Receipt Date: 20210730
  Transmission Date: 20211014
  Serious: Yes (Hospitalization, Other)
  Sender: FDA-Public Use
  Company Number: FR-PFIZER INC-202100924936

PATIENT
  Age: 27 Year
  Sex: Male

DRUGS (5)
  1. COCAINE (CRACK) [Suspect]
     Active Substance: COCAINE
     Dosage: UNK
  2. METHYLENEDIOXYMETHAMPHETAMINE (MDMA) [Suspect]
     Active Substance: MIDOMAFETAMINE
     Dosage: UNK
  3. LYRICA [Suspect]
     Active Substance: PREGABALIN
     Dosage: UNK
  4. QUETIAPINE. [Suspect]
     Active Substance: QUETIAPINE
     Dosage: UNK
     Route: 048
  5. BUPRENORPHINE. [Suspect]
     Active Substance: BUPRENORPHINE
     Dosage: UNK

REACTIONS (4)
  - Hepatic cytolysis [Recovered/Resolved]
  - Coma [Recovered/Resolved with Sequelae]
  - Bradypnoea [Recovered/Resolved]
  - Rhabdomyolysis [Recovered/Resolved]
